FAERS Safety Report 5158294-3 (Version None)
Quarter: 2006Q4

REPORT INFORMATION
  Report Type: 
  Country: None (occurrence: None)
  Receive Date: 20061128
  Receipt Date: 20061115
  Transmission Date: 20070319
  Serious: Yes (Other)
  Sender: FDA-Public Use
  Company Number: PHBS2006JP17932

PATIENT
  Age: 81 Year
  Sex: Male

DRUGS (8)
  1. LUDIOMIL [Suspect]
     Route: 048
     Dates: start: 20060829
  2. TIAPRIDE HYDROCHLORIDE [Concomitant]
     Route: 048
  3. NU-LOTAN [Concomitant]
     Route: 048
  4. NORVASC [Concomitant]
     Route: 048
  5. ALLOPURINOL [Concomitant]
     Route: 048
  6. ALLELOCK [Concomitant]
     Route: 048
  7. ARICEPT [Concomitant]
     Route: 048
  8. CALCIUM POLYSTYRENE SULFONATE [Concomitant]
     Route: 048

REACTIONS (2)
  - APLASTIC ANAEMIA [None]
  - PLATELET COUNT DECREASED [None]
